FAERS Safety Report 8773868 (Version 1)
Quarter: 2012Q4

REPORT INFORMATION
  Report Type: 
  Country: US (occurrence: US)
  Receive Date: 20120907
  Receipt Date: 20120907
  Transmission Date: 20130627
  Serious: No
  Sender: FDA-Public Use
  Company Number: US-ASTRAZENECA-2012SE60288

PATIENT
  Age: 76 Year
  Sex: Female
  Weight: 72.6 kg

DRUGS (5)
  1. CRESTOR [Suspect]
     Indication: BLOOD CHOLESTEROL
     Dosage: 20 MG AND 10 MG ALTERNATELY EVERY DAY
     Route: 048
  2. LISINOPRIL [Suspect]
     Route: 048
  3. METFORMIN [Concomitant]
  4. BABY ASPIRIN [Concomitant]
  5. TRAVATAN [Concomitant]

REACTIONS (2)
  - Myalgia [Unknown]
  - Off label use [Unknown]
